FAERS Safety Report 14934528 (Version 1)
Quarter: 2018Q2

REPORT INFORMATION
  Report Type: Spontaneous
  Country: DE (occurrence: DE)
  Receive Date: 20180524
  Receipt Date: 20180524
  Transmission Date: 20180711
  Serious: Yes (Hospitalization)
  Sender: FDA-Public Use
  Company Number: DE-DRREDDYS-GER/GER/18/0099185

PATIENT
  Age: 29 Year
  Sex: Male

DRUGS (43)
  1. ARIPIPRAZOLE. [Suspect]
     Active Substance: ARIPIPRAZOLE
     Dates: start: 20170704, end: 20170708
  2. ARIPIPRAZOLE. [Suspect]
     Active Substance: ARIPIPRAZOLE
     Dates: start: 20170709, end: 20170711
  3. RISPERIGAMMA [Suspect]
     Active Substance: RISPERIDONE
     Dates: start: 20170626, end: 20170703
  4. RISPERIGAMMA [Suspect]
     Active Substance: RISPERIDONE
     Dates: start: 20170706, end: 20170709
  5. SOLIAN [Concomitant]
     Active Substance: AMISULPRIDE
     Dates: start: 20170828, end: 20170830
  6. SERTRALIN STADA [Concomitant]
     Active Substance: SERTRALINE HYDROCHLORIDE
     Indication: PRODUCT USED FOR UNKNOWN INDICATION
     Dates: start: 20170801, end: 20170803
  7. SERTRALIN STADA [Concomitant]
     Active Substance: SERTRALINE HYDROCHLORIDE
     Dates: start: 20170725, end: 20170727
  8. QUETIAPINE. [Suspect]
     Active Substance: QUETIAPINE
     Dates: start: 20170719, end: 20170720
  9. ARIPIPRAZOLE. [Suspect]
     Active Substance: ARIPIPRAZOLE
     Indication: PRODUCT USED FOR UNKNOWN INDICATION
     Dates: start: 20170712, end: 20170715
  10. ARIPIPRAZOLE. [Suspect]
     Active Substance: ARIPIPRAZOLE
     Dates: start: 20170527, end: 20170601
  11. ARIPIPRAZOLE. [Suspect]
     Active Substance: ARIPIPRAZOLE
     Dates: start: 20170602, end: 20170606
  12. ARIPIPRAZOLE. [Suspect]
     Active Substance: ARIPIPRAZOLE
     Dates: start: 20170207, end: 20170526
  13. RISPERIGAMMA [Suspect]
     Active Substance: RISPERIDONE
     Indication: PRODUCT USED FOR UNKNOWN INDICATION
     Dates: start: 20170713
  14. RISPERIGAMMA [Suspect]
     Active Substance: RISPERIDONE
     Dates: start: 20170601, end: 20170605
  15. QUETIAPIN AL [Concomitant]
     Indication: PRODUCT USED FOR UNKNOWN INDICATION
     Dates: start: 20170712
  16. QUETIAPIN AL [Concomitant]
     Dates: start: 20170710, end: 20170711
  17. QUETIAPINE. [Suspect]
     Active Substance: QUETIAPINE
     Dates: start: 20170717, end: 20170718
  18. RISPERIGAMMA [Suspect]
     Active Substance: RISPERIDONE
     Dates: start: 20170606, end: 20170612
  19. RISPERIGAMMA [Suspect]
     Active Substance: RISPERIDONE
     Dates: start: 20170623, end: 20170625
  20. MESALAZIN [Concomitant]
     Active Substance: MESALAMINE
     Indication: PRODUCT USED FOR UNKNOWN INDICATION
     Dosage: LZ MEDICATION CONTINUES
  21. DOCITON [Concomitant]
     Active Substance: PROPRANOLOL HYDROCHLORIDE
     Indication: PRODUCT USED FOR UNKNOWN INDICATION
     Dates: start: 20170704, end: 20170724
  22. QUETIAPINE. [Suspect]
     Active Substance: QUETIAPINE
     Indication: PRODUCT USED FOR UNKNOWN INDICATION
     Dates: start: 20170804
  23. ARIPIPRAZOLE. [Suspect]
     Active Substance: ARIPIPRAZOLE
     Dates: start: 20160706, end: 20160725
  24. RISPERIGAMMA [Suspect]
     Active Substance: RISPERIDONE
     Dates: start: 20170710
  25. SOLIAN [Concomitant]
     Active Substance: AMISULPRIDE
     Dates: start: 20170831, end: 20170902
  26. SERTRALIN STADA [Concomitant]
     Active Substance: SERTRALINE HYDROCHLORIDE
     Dates: start: 201606, end: 20170724
  27. IMUREK [Concomitant]
     Active Substance: AZATHIOPRINE
     Indication: PRODUCT USED FOR UNKNOWN INDICATION
     Dosage: LZ MEDICATION CONTINUES
  28. RISPERIGAMMA [Suspect]
     Active Substance: RISPERIDONE
     Dates: start: 20170613, end: 20170622
  29. SOLIAN [Concomitant]
     Active Substance: AMISULPRIDE
     Dates: start: 20170704, end: 20170710
  30. SOLIAN [Concomitant]
     Active Substance: AMISULPRIDE
     Dates: start: 20170711, end: 20170823
  31. ARIPIPRAZOLE. [Suspect]
     Active Substance: ARIPIPRAZOLE
     Dates: start: 20170629, end: 20170703
  32. ARIPIPRAZOLE. [Suspect]
     Active Substance: ARIPIPRAZOLE
     Dates: start: 20170617, end: 20170621
  33. SERTRALIN STADA [Concomitant]
     Active Substance: SERTRALINE HYDROCHLORIDE
     Dates: start: 20170728, end: 20170731
  34. QUETIAPINE. [Suspect]
     Active Substance: QUETIAPINE
     Dates: start: 20170712, end: 20170716
  35. QUETIAPINE. [Suspect]
     Active Substance: QUETIAPINE
     Dates: start: 20170721, end: 20170803
  36. ARIPIPRAZOLE. [Suspect]
     Active Substance: ARIPIPRAZOLE
     Dates: start: 20170622, end: 20170628
  37. ARIPIPRAZOLE. [Suspect]
     Active Substance: ARIPIPRAZOLE
     Dosage: 12.5 - 15 MG
     Dates: start: 20160726, end: 20170206
  38. ARIPIPRAZOLE. [Suspect]
     Active Substance: ARIPIPRAZOLE
     Dates: end: 20170616
  39. SOLIAN [Concomitant]
     Active Substance: AMISULPRIDE
     Dates: start: 20170824, end: 20170827
  40. RISPERIGAMMA [Suspect]
     Active Substance: RISPERIDONE
     Dates: start: 20170711, end: 20170712
  41. RISPERIGAMMA [Suspect]
     Active Substance: RISPERIDONE
     Dates: start: 20170704, end: 20170705
  42. SOLIAN [Concomitant]
     Active Substance: AMISULPRIDE
     Indication: PRODUCT USED FOR UNKNOWN INDICATION
     Dosage: 150-200 MG
     Dates: start: 20170627, end: 20170630
  43. SOLIAN [Concomitant]
     Active Substance: AMISULPRIDE
     Dates: start: 20170701, end: 20170703

REACTIONS (2)
  - Akathisia [Recovered/Resolved]
  - Weight increased [Not Recovered/Not Resolved]

NARRATIVE: CASE EVENT DATE: 20170531
